FAERS Safety Report 10846795 (Version 2)
Quarter: 2015Q1

REPORT INFORMATION
  Report Type: Spontaneous
  Country: FR (occurrence: FR)
  Receive Date: 20150220
  Receipt Date: 20150226
  Transmission Date: 20150721
  Serious: Yes (Hospitalization)
  Sender: FDA-Public Use
  Company Number: FR-009507513-1502FRA007095

PATIENT
  Age: 85 Year
  Sex: Male

DRUGS (13)
  1. FORTUM [Suspect]
     Active Substance: CEFTAZIDIME
     Dosage: TOTAL DAILY DOSE 2MG
     Route: 031
     Dates: start: 20150119, end: 20150121
  2. DIAMOX SEQUELS [Concomitant]
     Active Substance: ACETAZOLAMIDE
  3. DIPRIVAN [Concomitant]
     Active Substance: PROPOFOL
  4. OFLOCET (OFLOXACIN) [Suspect]
     Active Substance: OFLOXACIN
     Dosage: STRENGTH: 200MG/40ML
     Dates: start: 20150120, end: 20150121
  5. VANCOMYCIN [Suspect]
     Active Substance: VANCOMYCIN
     Dosage: TOTAL DAILY DOSE 1MG
     Route: 031
     Dates: start: 20150119, end: 20150121
  6. ACUPAN [Concomitant]
     Active Substance: NEFOPAM HYDROCHLORIDE
  7. PIPERACILLIN [Suspect]
     Active Substance: PIPERACILLIN
     Dosage: TOTAL DAILY DOSE 4G
     Route: 042
     Dates: start: 20150120, end: 20150121
  8. YELLOX [Suspect]
     Active Substance: BROMFENAC SODIUM
     Dosage: STRENGTH: 0.9 MG/ML. FORMULATION: OPHTALMIC. ROUTE OF ADMINISTRATION: EYE SOLUTION
     Route: 047
     Dates: start: 20150113
  9. CELESTENE 4MG/1ML [Suspect]
     Active Substance: BETAMETHASONE
     Dosage: 4 MG, QD
     Route: 057
     Dates: start: 20150119, end: 20150119
  10. CHIBRO-CADRON [Suspect]
     Active Substance: DEXAMETHASONE\NEOMYCIN SULFATE
     Dosage: FORMULATION: OPHTALMIC. ROUTE OF ADMINISTRATION: EYE SOLUTION
     Route: 047
     Dates: start: 20150113
  11. SUFENTA [Concomitant]
     Active Substance: SUFENTANIL CITRATE
  12. CEFUROXIME. [Concomitant]
     Active Substance: CEFUROXIME
  13. EPHEDRINE [Concomitant]
     Active Substance: EPHEDRINE

REACTIONS (2)
  - Rash maculo-papular [Recovering/Resolving]
  - Eosinophilia [Recovering/Resolving]

NARRATIVE: CASE EVENT DATE: 20150121
